FAERS Safety Report 6451620-4 (Version None)
Quarter: 2009Q4

REPORT INFORMATION
  Report Type: 
  Country: None (occurrence: None)
  Receive Date: 20091123
  Receipt Date: 20091112
  Transmission Date: 20100525
  Serious: Yes (Hospitalization, Other)
  Sender: FDA-Public Use
  Company Number: PHHO2008US09770

PATIENT
  Sex: Male

DRUGS (4)
  1. PLACEBO COMP-PLA+ [Suspect]
     Indication: RENAL CANCER METASTATIC
     Dosage: UNK
     Route: 048
     Dates: start: 20070529
  2. RAD001 [Suspect]
     Indication: RENAL CANCER METASTATIC
     Dosage: 10 MG, QD
     Route: 048
     Dates: start: 20080122, end: 20080723
  3. RAD001 [Suspect]
     Dosage: 5 MG, QD
     Route: 048
     Dates: start: 20080812
  4. RAD001 [Suspect]
     Dosage: 5 MG, QD
     Route: 048
     Dates: start: 20080906

REACTIONS (6)
  - DISEASE PROGRESSION [None]
  - DYSPNOEA [None]
  - EJECTION FRACTION DECREASED [None]
  - PERICARDIAL EFFUSION [None]
  - PERICARDIAL EXCISION [None]
  - PERICARDIAL OPERATION [None]
